FAERS Safety Report 16644123 (Version 1)
Quarter: 2019Q3

REPORT INFORMATION
  Report Type: Report from Study
  Country: GB (occurrence: GB)
  Receive Date: 20190729
  Receipt Date: 20190729
  Transmission Date: 20191004
  Serious: Yes (Other)
  Sender: FDA-Public Use
  Company Number: GB-PFIZER INC-2019319132

PATIENT
  Age: 20 Month
  Sex: Male

DRUGS (2)
  1. SODIUM CHLORIDE. [Suspect]
     Active Substance: SODIUM CHLORIDE
     Indication: DEHYDRATION
  2. SODIUM CHLORIDE. [Suspect]
     Active Substance: SODIUM CHLORIDE
     Indication: NEPHROGENIC DIABETES INSIPIDUS
     Dosage: UNK (0.9% SALINE)

REACTIONS (3)
  - Hypernatraemia [Unknown]
  - Encephalopathy [Unknown]
  - Demyelination [Unknown]
